FAERS Safety Report 17544099 (Version 3)
Quarter: 2020Q3

REPORT INFORMATION
  Report Type: Report from Study
  Country: CO (occurrence: CO)
  Receive Date: 20200316
  Receipt Date: 20200822
  Transmission Date: 20201102
  Serious: Yes (Hospitalization, Other)
  Sender: FDA-Public Use
  Company Number: CO-AMGEN-COLSL2020041070

PATIENT
  Age: 57 Year
  Sex: Male

DRUGS (4)
  1. KYPROLIS [Suspect]
     Active Substance: CARFILZOMIB
     Indication: PLASMA CELL MYELOMA
     Dosage: 46 MILLIGRAM (OTHER)
     Route: 065
     Dates: start: 20191007
  2. KYPROLIS [Suspect]
     Active Substance: CARFILZOMIB
     Dosage: 92 MILLIGRAM
     Route: 042
     Dates: end: 2020
  3. KYPROLIS [Suspect]
     Active Substance: CARFILZOMIB
     Dosage: 120 MILLIGRAM, ONE DAY PER WEEK, 3 WEEKS IN A ROW, RESTING THE LAST WEEK OF THE MONTH
     Route: 042
     Dates: start: 2020
  4. KYPROLIS [Suspect]
     Active Substance: CARFILZOMIB
     Dosage: 100 MILLIGRAM, ONE DAY PER WEEK, 3 WEEKS IN A ROW, RESTING THE LAST WEEK OF THE MONTH
     Route: 042
     Dates: start: 20200814

REACTIONS (1)
  - Jaundice [Recovering/Resolving]

NARRATIVE: CASE EVENT DATE: 20200304
